FAERS Safety Report 21143275 (Version 2)
Quarter: 2022Q3

REPORT INFORMATION
  Report Type: Spontaneous
  Country: US (occurrence: None)
  Receive Date: 20220728
  Receipt Date: 20220804
  Transmission Date: 20221027
  Serious: Yes (Other)
  Sender: FDA-Public Use
  Company Number: 2022A268485

PATIENT
  Sex: Female

DRUGS (1)
  1. TAGRISSO [Suspect]
     Active Substance: OSIMERTINIB
     Dosage: SHE WAS PUT ON TAGRISSO 4 1/2 YEARS AGO.
     Route: 048

REACTIONS (2)
  - Acquired gene mutation [Unknown]
  - Product storage error [Unknown]
